FAERS Safety Report 8912713 (Version 1)
Quarter: 2012Q4

REPORT INFORMATION
  Report Type: 
  Country: JP (occurrence: JP)
  Receive Date: 20121116
  Receipt Date: 20121116
  Transmission Date: 20130627
  Serious: Yes (Other)
  Sender: FDA-Public Use
  Company Number: JP-ABBOTT-12P-087-1003574-00

PATIENT
  Age: 11 Year
  Sex: Male

DRUGS (7)
  1. CLARITHROMYCIN [Suspect]
     Indication: BRONCHITIS
  2. CLARITHROMYCIN [Suspect]
     Indication: INFLUENZA
  3. TOSUFLOXACIN TOSYLATE [Suspect]
     Indication: PNEUMONIA
     Route: 048
  4. OSELTAMIVIR [Suspect]
     Indication: BRONCHITIS
  5. OSELTAMIVIR [Suspect]
     Indication: INFLUENZA
  6. LANINAMIVIR [Concomitant]
     Indication: PNEUMONIA
  7. MINOMYCIN [Concomitant]
     Indication: PNEUMONIA

REACTIONS (3)
  - Anaemia haemolytic autoimmune [Recovered/Resolved]
  - Asthma [Unknown]
  - Pneumonia [Recovering/Resolving]
